FAERS Safety Report 12544100 (Version 1)
Quarter: 2016Q3

REPORT INFORMATION
  Report Type: Spontaneous
  Country: US (occurrence: US)
  Receive Date: 20160711
  Receipt Date: 20160711
  Transmission Date: 20161109
  Serious: Yes (Hospitalization)
  Sender: FDA-Public Use
  Company Number: US-ACCORD-042133

PATIENT
  Age: 40 Year
  Sex: Female

DRUGS (12)
  1. VACCINIUM MACROCARPON [Interacting]
     Active Substance: CRANBERRY
     Indication: CYSTITIS
  2. TACROLIMUS. [Interacting]
     Active Substance: TACROLIMUS
     Indication: RENAL TRANSPLANT
  3. ONDANSETRON [Concomitant]
     Active Substance: ONDANSETRON
  4. TAMSULOSIN/TAMSULOSIN HYDROCHLORIDE [Concomitant]
  5. PANTOPRAZOLE [Concomitant]
     Active Substance: PANTOPRAZOLE SODIUM
  6. PREDNISONE. [Suspect]
     Active Substance: PREDNISONE
     Indication: RENAL TRANSPLANT
  7. CAPTOPRIL. [Concomitant]
     Active Substance: CAPTOPRIL
  8. MYCOPHENOLIC ACID. [Suspect]
     Active Substance: MYCOPHENOLIC ACID
     Indication: RENAL TRANSPLANT
  9. PARACETAMOL [Concomitant]
     Active Substance: ACETAMINOPHEN
  10. CLONIDINE. [Concomitant]
     Active Substance: CLONIDINE
  11. VENLAFAXINE/VENLAFAXINE HYDROCHLORIDE [Concomitant]
  12. CEFALEXIN [Concomitant]
     Active Substance: CEPHALEXIN
     Indication: CYSTITIS

REACTIONS (3)
  - Drug level decreased [Recovered/Resolved]
  - Drug interaction [Unknown]
  - Cystitis [Unknown]
